FAERS Safety Report 4547174-X (Version None)
Quarter: 2005Q1

REPORT INFORMATION
  Report Type: 
  Country: None (occurrence: None)
  Receive Date: 20050107
  Receipt Date: 20041229
  Transmission Date: 20050727
  Serious: Yes (Hospitalization)
  Sender: FDA-Public Use
  Company Number: 200414927FR

PATIENT
  Age: 73 Year
  Sex: Female

DRUGS (6)
  1. LASILIX 40 MG [Suspect]
     Indication: OEDEMA
     Route: 048
  2. TRIATEC 2.5 MG [Suspect]
     Indication: ESSENTIAL HYPERTENSION
     Route: 048
  3. INSULIN [Suspect]
     Indication: DIABETES MELLITUS
     Route: 030
  4. TRACLEER [Suspect]
     Indication: PULMONARY HYPERTENSION
     Route: 048
     Dates: start: 20021213
  5. PREVISCAN 20 MG [Concomitant]
     Indication: EMBOLISM VENOUS
     Route: 048
  6. MOPRAL [Suspect]
     Indication: OESOPHAGITIS
     Route: 048

REACTIONS (1)
  - MICROCYTIC ANAEMIA [None]
